FAERS Safety Report 19500504 (Version 4)
Quarter: 2021Q3

REPORT INFORMATION
  Report Type: Report from Study
  Country: US (occurrence: US)
  Receive Date: 20210706
  Receipt Date: 20210727
  Transmission Date: 20211014
  Serious: Yes (Death, Hospitalization)
  Sender: FDA-Public Use
  Company Number: US-AMGEN-USACT2021095842

PATIENT
  Age: 63 Year
  Sex: Female
  Weight: 54.3 kg

DRUGS (18)
  1. AFATINIB DIMALEATE [Suspect]
     Active Substance: AFATINIB DIMALEATE
     Indication: K-RAS GENE MUTATION
     Dosage: 960 MILLIGRAM
     Route: 048
     Dates: start: 20210224
  2. MORPHINE [Concomitant]
     Active Substance: MORPHINE
     Dosage: 2 TO 15 MILLIGRAM
     Route: 048
     Dates: start: 202101, end: 20210627
  3. IMODIUM [Concomitant]
     Active Substance: LOPERAMIDE HYDROCHLORIDE
     Dosage: 2 MILLIGRAM
     Route: 048
     Dates: start: 20210309
  4. FUROSEMIDE. [Concomitant]
     Active Substance: FUROSEMIDE
     Dosage: 20 MILLIGRAM
     Route: 042
     Dates: start: 20210327, end: 20210626
  5. APAP;HYDROCODONE [Concomitant]
     Active Substance: ACETAMINOPHEN\HYDROCODONE
     Dosage: 1 UNK
     Route: 048
     Dates: start: 202002
  6. ALBUTEROL [SALBUTAMOL] [Concomitant]
     Active Substance: ALBUTEROL
     Dosage: 2 UNK
     Dates: start: 2020
  7. AFATINIB DIMALEATE [Suspect]
     Active Substance: AFATINIB DIMALEATE
     Indication: NON-SMALL CELL LUNG CANCER STAGE IV
  8. LEVOFLOXACIN. [Concomitant]
     Active Substance: LEVOFLOXACIN
     Dosage: 500 MILLIGRAM
     Route: 048
     Dates: start: 20210528, end: 20210603
  9. DOCUSATE;SENNOSIDE A+B [Concomitant]
     Dosage: 1 UNK
     Route: 048
     Dates: start: 2020
  10. ALBUTEROL;IPRATROPIUM [Concomitant]
     Active Substance: ALBUTEROL\IPRATROPIUM
     Dosage: 3 MILLILITER
     Dates: start: 2020
  11. AMG 510 [Suspect]
     Active Substance: AMG-510
     Indication: K-RAS GENE MUTATION
     Dosage: 960 MILLIGRAM
     Route: 048
     Dates: start: 20210224, end: 20210616
  12. PREDNISONE. [Concomitant]
     Active Substance: PREDNISONE
     Dosage: 40?60  MILLIGRAM
     Route: 048
     Dates: start: 20210528, end: 20210626
  13. ENOXAPARIN SODIUM. [Concomitant]
     Active Substance: ENOXAPARIN SODIUM
     Dosage: 40 MILLIGRAM
     Route: 058
     Dates: start: 20210326
  14. PHENYLEPHRINE [Concomitant]
     Active Substance: PHENYLEPHRINE HYDROCHLORIDE
     Dosage: 1 UNK
     Route: 045
     Dates: start: 20210331
  15. LORAZEPAM. [Concomitant]
     Active Substance: LORAZEPAM
     Dosage: 0.5 TO 1 MILLIGRAM
     Dates: start: 2020, end: 20210627
  16. AMG 510 [Suspect]
     Active Substance: AMG-510
     Indication: NON-SMALL CELL LUNG CANCER STAGE IV
  17. METHYLPREDNISOLONE. [Concomitant]
     Active Substance: METHYLPREDNISOLONE
     Dosage: 60 TO 125 MILLIGRAM
     Route: 042
     Dates: start: 20210407, end: 20210626
  18. PROCHLORPERAZINE. [Concomitant]
     Active Substance: PROCHLORPERAZINE
     Dosage: 10 MILLIGRAM
     Route: 048
     Dates: start: 20210308

REACTIONS (1)
  - Respiratory failure [Fatal]

NARRATIVE: CASE EVENT DATE: 20210617
